FAERS Safety Report 18655547 (Version 1)
Quarter: 2020Q4

REPORT INFORMATION
  Report Type: Spontaneous
  Country: US (occurrence: US)
  Receive Date: 20201223
  Receipt Date: 20201223
  Transmission Date: 20210114
  Serious: No
  Sender: FDA-Public Use
  Company Number: US-KYOWAKIRIN-2020BKK022188

PATIENT

DRUGS (1)
  1. CRYSVITA [Suspect]
     Active Substance: BUROSUMAB-TWZA
     Indication: HEREDITARY HYPOPHOSPHATAEMIC RICKETS
     Dosage: 90 MG, ONCE EVERY 14 DAYS
     Route: 058
     Dates: start: 20190227

REACTIONS (1)
  - Suspected COVID-19 [Unknown]

NARRATIVE: CASE EVENT DATE: 2020
